FAERS Safety Report 17694456 (Version 2)
Quarter: 2020Q4

REPORT INFORMATION
  Report Type: Spontaneous
  Country: US (occurrence: US)
  Receive Date: 20200422
  Receipt Date: 20201201
  Transmission Date: 20210113
  Serious: Yes (Other)
  Sender: FDA-Public Use
  Company Number: US-ASTRAZENECA-2020SE51639

PATIENT
  Sex: Female
  Weight: 47.2 kg

DRUGS (48)
  1. PROTONIX [Suspect]
     Active Substance: PANTOPRAZOLE SODIUM
     Route: 065
  2. ULTRAM [Concomitant]
     Active Substance: TRAMADOL HYDROCHLORIDE
     Dates: start: 20140916
  3. ZOFRAN [Concomitant]
     Active Substance: ONDANSETRON HYDROCHLORIDE
  4. ADVIL [Concomitant]
     Active Substance: IBUPROFEN
     Dates: start: 20140916
  5. PRINIVIL [Concomitant]
     Active Substance: LISINOPRIL
     Dates: start: 20140916
  6. EFFEXOR [Concomitant]
     Active Substance: VENLAFAXINE HYDROCHLORIDE
     Dates: start: 20140916
  7. MACROBID [Concomitant]
     Active Substance: NITROFURANTOIN\NITROFURANTOIN MONOHYDRATE
  8. ANORO ELLIPTA [Concomitant]
     Active Substance: UMECLIDINIUM BROMIDE\VILANTEROL TRIFENATATE
  9. PREVACID [Suspect]
     Active Substance: LANSOPRAZOLE
     Route: 065
     Dates: start: 199401, end: 201712
  10. GLUCOPHAGE [Concomitant]
     Active Substance: METFORMIN HYDROCHLORIDE
     Dates: start: 20140916
  11. CHANTIX [Concomitant]
     Active Substance: VARENICLINE TARTRATE
     Dates: start: 20140922
  12. DUONEB [Concomitant]
     Active Substance: ALBUTEROL SULFATE\IPRATROPIUM BROMIDE
  13. CLEOCIN [Concomitant]
     Active Substance: CLINDAMYCIN PHOSPHATE
  14. BIOTIN [Concomitant]
     Active Substance: BIOTIN
  15. PRILOSEC OTC [Suspect]
     Active Substance: OMEPRAZOLE MAGNESIUM
     Route: 048
     Dates: start: 199401, end: 201712
  16. PROTONIX [Suspect]
     Active Substance: PANTOPRAZOLE SODIUM
     Dosage: ENTERIC COATED TABLET
     Route: 065
     Dates: start: 20150430
  17. XANAX [Concomitant]
     Active Substance: ALPRAZOLAM
     Dates: start: 20140916
  18. LIPITOR [Concomitant]
     Active Substance: ATORVASTATIN CALCIUM
     Dates: start: 20140916
  19. CORTISPORIN [Concomitant]
     Active Substance: BACITRACIN ZINC\HYDROCORTISONE\NEOMYCIN SULFATE\POLYMYXIN B SULFATE
     Dates: start: 20140916
  20. NITROSTAT [Concomitant]
     Active Substance: NITROGLYCERIN
     Dates: start: 20140916
  21. VERSED [Concomitant]
     Active Substance: MIDAZOLAM HYDROCHLORIDE
     Dates: start: 20141008
  22. TYLENOL [Concomitant]
     Active Substance: ACETAMINOPHEN
  23. ROBITUSSIN DM [Concomitant]
     Active Substance: DEXTROMETHORPHAN HYDROBROMIDE\GUAIFENESIN
  24. TAMIFLU [Concomitant]
     Active Substance: OSELTAMIVIR PHOSPHATE
  25. DULCOLAX NOS [Concomitant]
     Active Substance: BISACODYL OR DOCUSATE SODIUM
  26. NEXIUM [Suspect]
     Active Substance: ESOMEPRAZOLE MAGNESIUM
     Route: 048
     Dates: start: 199401, end: 201712
  27. NEXIUM 24HR [Suspect]
     Active Substance: ESOMEPRAZOLE MAGNESIUM
     Route: 048
     Dates: start: 199401, end: 201712
  28. PREVACID 24 HR [Suspect]
     Active Substance: LANSOPRAZOLE
     Route: 065
     Dates: start: 199401, end: 201712
  29. LOTRISONE [Concomitant]
     Active Substance: BETAMETHASONE DIPROPIONATE\CLOTRIMAZOLE
     Dates: start: 20140916
  30. XOPENEX [Concomitant]
     Active Substance: LEVALBUTEROL HYDROCHLORIDE
  31. DILAUDID [Concomitant]
     Active Substance: HYDROMORPHONE HYDROCHLORIDE
  32. PROVENTIL [Concomitant]
     Active Substance: ALBUTEROL
     Dates: start: 20140916
  33. FOSAMAX [Concomitant]
     Active Substance: ALENDRONATE SODIUM
     Dates: start: 20140916
  34. PLAVIX [Concomitant]
     Active Substance: CLOPIDOGREL BISULFATE
     Dates: start: 20140916
  35. NEURONTIN [Concomitant]
     Active Substance: GABAPENTIN
     Dates: start: 20140922
  36. MARCAINE [Concomitant]
     Active Substance: BUPIVACAINE HYDROCHLORIDE
  37. DEXILANT [Suspect]
     Active Substance: DEXLANSOPRAZOLE
     Route: 065
     Dates: start: 199401, end: 201712
  38. CALCIUM [Concomitant]
     Active Substance: CALCIUM
     Dates: start: 20140916
  39. VOLTAREN [Concomitant]
     Active Substance: DICLOFENAC SODIUM
     Dates: start: 20140916
  40. PROPOFOL. [Concomitant]
     Active Substance: PROPOFOL
     Dates: start: 20141008
  41. LEXISCAN [Concomitant]
     Active Substance: REGADENOSON
  42. CEPACOL [Concomitant]
     Active Substance: BENZOCAINE
  43. BENZOCAINE. [Concomitant]
     Active Substance: BENZOCAINE
  44. PULMICORT TURBUHALER [Concomitant]
     Active Substance: BUDESONIDE
  45. VITAMIN B12 [Concomitant]
     Active Substance: CYANOCOBALAMIN
  46. COMMIT [Concomitant]
     Active Substance: NICOTINE
     Dates: start: 20140916
  47. BENADRYL [Concomitant]
     Active Substance: DIPHENHYDRAMINE HYDROCHLORIDE
  48. KENALOG [Concomitant]
     Active Substance: TRIAMCINOLONE ACETONIDE

REACTIONS (3)
  - Chronic kidney disease [Not Recovered/Not Resolved]
  - Acute kidney injury [Not Recovered/Not Resolved]
  - Renal failure [Unknown]
